FAERS Safety Report 8766866 (Version 1)
Quarter: 2012Q4

REPORT INFORMATION
  Report Type: 
  Country: US (occurrence: US)
  Receive Date: 20120903
  Receipt Date: 20120903
  Transmission Date: 20130627
  Serious: Yes (Life-Threatening)
  Sender: FDA-Public Use
  Company Number: US-BAYER-2012-088500

PATIENT
  Age: 30 Year
  Sex: Female

DRUGS (1)
  1. YAZ [Suspect]

REACTIONS (1)
  - Thrombosis [None]
